FAERS Safety Report 5920457-4 (Version None)
Quarter: 2008Q4

REPORT INFORMATION
  Report Type: 
  Country: None (occurrence: None)
  Receive Date: 20081015
  Receipt Date: 20081015
  Transmission Date: 20090506
  Serious: Yes (Hospitalization)
  Sender: FDA-Public Use
  Company Number: None

PATIENT
  Age: 73 Year
  Sex: Male
  Weight: 70.53 kg

DRUGS (1)
  1. TRAZODONE HCL [Suspect]
     Indication: DRUG DISPENSING ERROR
     Dosage: 100 MG ONCE PO
     Route: 048

REACTIONS (5)
  - DIZZINESS POSTURAL [None]
  - DRUG DISPENSING ERROR [None]
  - NAUSEA [None]
  - VOMITING [None]
  - WRONG DRUG ADMINISTERED [None]
